FAERS Safety Report 5931359-1 (Version None)
Quarter: 2008Q4

REPORT INFORMATION
  Report Type: 
  Country: None (occurrence: None)
  Receive Date: 20081024
  Receipt Date: 20081024
  Transmission Date: 20090506
  Serious: Yes (Other)
  Sender: FDA-Public Use
  Company Number: None

PATIENT
  Age: 57 Year
  Sex: Female
  Weight: 90.7194 kg

DRUGS (12)
  1. METFORMIN HCL [Suspect]
     Indication: DIABETES MELLITUS
     Dosage: 1000MG ONCE A DAY PO 500MG AT HS PO
     Route: 048
     Dates: start: 20080506, end: 20081023
  2. HUMALOG [Concomitant]
  3. LANTUS [Concomitant]
  4. SIMVASTATIN [Concomitant]
  5. HYDROCHLOROTHIAZIDE [Concomitant]
  6. LEXAPRO [Concomitant]
  7. WELLBUTRIN SR [Concomitant]
  8. ADVAIR DISKUS 100/50 [Concomitant]
  9. SINGULAIRMULTIVITAMINS [Concomitant]
  10. CALCIUM WITH VITAMIN D [Concomitant]
  11. ALPHA LIPOIC ACID [Concomitant]
  12. COENZYME Q10 [Concomitant]

REACTIONS (4)
  - BLOOD GLUCOSE FLUCTUATION [None]
  - DIABETES MELLITUS INADEQUATE CONTROL [None]
  - DRUG INEFFECTIVE [None]
  - THERAPEUTIC RESPONSE UNEXPECTED WITH DRUG SUBSTITUTION [None]
